FAERS Safety Report 5930085-2 (Version None)
Quarter: 2008Q4

REPORT INFORMATION
  Report Type: 
  Country: None (occurrence: None)
  Receive Date: 20081024
  Receipt Date: 20081019
  Transmission Date: 20090506
  Serious: No
  Sender: FDA-Public Use
  Company Number: US-B.I. PHARMACEUTICALS,INC./RIDGEFIELD-2008-BP-16043BP

PATIENT
  Age: 54 Year
  Sex: Male

DRUGS (3)
  1. DULCOLAX [Suspect]
     Indication: COLONOSCOPY
     Dosage: 20MG
     Route: 048
     Dates: start: 20081019
  2. HEART MEDICINE [Concomitant]
  3. DIABETES [Concomitant]

REACTIONS (3)
  - MUSCLE SPASMS [None]
  - RHINORRHOEA [None]
  - URTICARIA [None]
